FAERS Safety Report 15965111 (Version 1)
Quarter: 2019Q1

REPORT INFORMATION
  Report Type: Spontaneous
  Country: JP (occurrence: JP)
  Receive Date: 20190215
  Receipt Date: 20190215
  Transmission Date: 20190418
  Serious: Yes (Other)
  Sender: FDA-Public Use
  Company Number: JP-TEVA-2019-JP-1013320

PATIENT
  Age: 5 Decade

DRUGS (2)
  1. SELBEX [Suspect]
     Active Substance: TEPRENONE
     Dosage: /8 HOURS
     Route: 065
  2. MODIODAL TABLETS 100MG [Suspect]
     Active Substance: MODAFINIL
     Indication: SOMNOLENCE
     Route: 048

REACTIONS (1)
  - Drug dependence [Unknown]
